FAERS Safety Report 9339054 (Version 2)
Quarter: 2013Q2

REPORT INFORMATION
  Report Type: Spontaneous
  Country: FR (occurrence: FR)
  Receive Date: 20130610
  Receipt Date: 20130624
  Transmission Date: 20140414
  Serious: Yes (Other)
  Sender: FDA-Public Use
  Company Number: FR-GENZYME-RENA-1001805

PATIENT
  Age: 41 Year
  Sex: Male
  Weight: 63 kg

DRUGS (13)
  1. RENAGEL [Suspect]
     Indication: HYPERPHOSPHATAEMIA
     Dosage: 2 TABLET IN THE MORNING, 2 TABLET AT NOON, 2 TABLET IN THE EVENING
     Route: 048
     Dates: start: 20120718
  2. RENAGEL [Interacting]
     Dosage: 2 TABLET AT NOON AND 2 TABLET IN THE EVENING
     Route: 048
     Dates: end: 201211
  3. RENAGEL [Interacting]
     Dosage: UNK
     Route: 048
     Dates: start: 201303
  4. VFEND [Concomitant]
     Indication: ARTHRITIS FUNGAL
     Dosage: 2 DF, QD
     Route: 065
     Dates: start: 201204
  5. VFEND [Concomitant]
     Dosage: 400 MG, BID, 2 DF
     Route: 065
  6. LOXEN [Concomitant]
     Indication: PRODUCT USED FOR UNKNOWN INDICATION
     Dosage: 2 DF, QD
     Route: 065
  7. CIBACENE [Concomitant]
     Indication: PRODUCT USED FOR UNKNOWN INDICATION
     Dosage: 1 DF, QD
     Route: 065
  8. OROCAL [Concomitant]
     Indication: PRODUCT USED FOR UNKNOWN INDICATION
     Dosage: 3 DF, QD
     Route: 065
  9. MIMPARA [Concomitant]
     Indication: PRODUCT USED FOR UNKNOWN INDICATION
     Dosage: 1 DF, QD
     Route: 065
  10. INEXIUM [Concomitant]
     Indication: PRODUCT USED FOR UNKNOWN INDICATION
     Dosage: 1 DF, QD
     Route: 065
  11. ATARAX [Concomitant]
     Indication: PRODUCT USED FOR UNKNOWN INDICATION
     Dosage: 1 DF, QD
     Route: 065
  12. LEXOMIL [Concomitant]
     Indication: PRODUCT USED FOR UNKNOWN INDICATION
     Dosage: 3/4 DF, QD
     Route: 065
  13. TOPALGIC [Concomitant]
     Indication: PRODUCT USED FOR UNKNOWN INDICATION
     Dosage: 2 DF, QD
     Route: 065

REACTIONS (2)
  - Drug interaction [Unknown]
  - Fungal infection [Unknown]
